FAERS Safety Report 6738460-3 (Version None)
Quarter: 2010Q2

REPORT INFORMATION
  Report Type: 
  Country: None (occurrence: None)
  Receive Date: 20100524
  Receipt Date: 20100510
  Transmission Date: 20101027
  Serious: Yes (Hospitalization)
  Sender: FDA-Public Use
  Company Number: PHHY2010PA18917

PATIENT
  Age: 53 Year
  Sex: Male

DRUGS (2)
  1. EXFORGE [Suspect]
     Indication: HYPERTENSION
     Dosage: 1 TABLET (320/10 MG) PER DAY
     Route: 048
     Dates: start: 20091201
  2. THIAZIDES [Concomitant]

REACTIONS (4)
  - ABDOMINAL PAIN [None]
  - DIZZINESS [None]
  - FALL [None]
  - HYDROCEPHALUS [None]
